FAERS Safety Report 13602673 (Version 2)
Quarter: 2017Q3

REPORT INFORMATION
  Report Type: Spontaneous
  Country: US (occurrence: US)
  Receive Date: 20170601
  Receipt Date: 20170731
  Transmission Date: 20171127
  Serious: Yes (Other)
  Sender: FDA-Public Use
  Company Number: US-PFIZER INC-2017242505

PATIENT
  Age: 67 Year
  Sex: Female

DRUGS (1)
  1. XELJANZ [Suspect]
     Active Substance: TOFACITINIB CITRATE
     Dosage: 5 MG, 2X/DAY

REACTIONS (4)
  - Trichorrhexis [Unknown]
  - Hypertensive crisis [Recovering/Resolving]
  - Alopecia [Not Recovered/Not Resolved]
  - Hair texture abnormal [Unknown]

NARRATIVE: CASE EVENT DATE: 20170526
